FAERS Safety Report 11110192 (Version 1)
Quarter: 2015Q2

REPORT INFORMATION
  Report Type: Report from Study
  Country: DE (occurrence: DE)
  Receive Date: 20150513
  Receipt Date: 20150513
  Transmission Date: 20150821
  Serious: Yes (Hospitalization)
  Sender: FDA-Public Use
  Company Number: PHHO2011DE17049

PATIENT
  Age: 80 Year
  Sex: Male
  Weight: 85 kg

DRUGS (5)
  1. BLINDED ENALAPRIL [Suspect]
     Active Substance: ENALAPRIL
     Indication: CARDIAC FAILURE
     Dosage: NO TREATMENT
  2. COMPARATOR ENALAPRIL [Suspect]
     Active Substance: ENALAPRIL
     Indication: CARDIAC FAILURE
     Dosage: 10 MG, BID
     Route: 048
     Dates: start: 20110919, end: 20110929
  3. BLINDED ALISKIREN [Suspect]
     Active Substance: ALISKIREN
     Indication: CARDIAC FAILURE
     Dosage: NO TREATMENT
  4. BLINDED NO TREATMENT RECEIVED [Suspect]
     Active Substance: UNSPECIFIED INGREDIENT
     Indication: CARDIAC FAILURE
     Dosage: NO TREATMENT
  5. DICLOFENAC [Suspect]
     Active Substance: DICLOFENAC
     Indication: PRODUCT USED FOR UNKNOWN INDICATION
     Route: 065

REACTIONS (4)
  - Gastric ulcer [Recovered/Resolved]
  - Duodenal ulcer [Recovered/Resolved]
  - Anaemia [Recovering/Resolving]
  - Melaena [Recovered/Resolved]

NARRATIVE: CASE EVENT DATE: 20110929
